FAERS Safety Report 15122603 (Version 2)
Quarter: 2018Q3

REPORT INFORMATION
  Report Type: Spontaneous
  Country: NL (occurrence: NL)
  Receive Date: 20180709
  Receipt Date: 20180906
  Transmission Date: 20181010
  Serious: Yes (Death, Other)
  Sender: FDA-Public Use
  Company Number: NL-SA-2018SA174901

PATIENT
  Age: 77 Year
  Sex: Male

DRUGS (4)
  1. BCG FOR IMMUNOTHERAPY [Suspect]
     Active Substance: BACILLUS CALMETTE-GUERIN ANTIGEN, UNSPECIFIED SUBSTRAIN
     Indication: BLADDER CANCER
     Dosage: UNK
     Route: 043
  2. ISONIAZID. [Suspect]
     Active Substance: ISONIAZID
     Dosage: 300 MG
  3. RIFAMPICIN [Suspect]
     Active Substance: RIFAMPIN
     Dosage: 600 MG
  4. ETHAMBUTOL [Suspect]
     Active Substance: ETHAMBUTOL HYDROCHLORIDE
     Dosage: 1600 MG

REACTIONS (8)
  - Cough [Recovered/Resolved]
  - Hilar lymphadenopathy [Recovered/Resolved]
  - Hepatitis [Fatal]
  - Pneumonitis [Recovered/Resolved]
  - Dyspnoea [Recovered/Resolved]
  - Pyrexia [Recovered/Resolved]
  - Metastasis [Fatal]
  - Hepatotoxicity [Fatal]
